FAERS Safety Report 6616735-6 (Version None)
Quarter: 2010Q1

REPORT INFORMATION
  Report Type: 
  Country: None (occurrence: None)
  Receive Date: 20100305
  Receipt Date: 20100208
  Transmission Date: 20100710
  Serious: Yes (Other)
  Sender: FDA-Public Use
  Company Number: JP-SANOFI-AVENTIS-F01200900836

PATIENT
  Sex: Male
  Weight: 60 kg

DRUGS (13)
  1. CLOPIDOGREL BISULFATE [Suspect]
     Indication: ACUTE CORONARY SYNDROME
     Dosage: DOSE TEXT: STARTING DOSE
     Route: 048
     Dates: start: 20080324, end: 20080324
  2. CLOPIDOGREL BISULFATE [Suspect]
     Dosage: DOSE TEXT: STARTING DOSE
     Route: 048
     Dates: start: 20080324, end: 20080324
  3. CLOPIDOGREL BISULFATE [Suspect]
     Dosage: DOSE TEXT: MAINTENANCE DOSE
     Route: 048
     Dates: start: 20080325
  4. CLOPIDOGREL BISULFATE [Suspect]
     Dosage: DOSE TEXT: MAINTENANCE DOSE
     Route: 048
     Dates: start: 20080325
  5. ASPIRIN [Concomitant]
     Route: 048
     Dates: start: 20080324
  6. HEPARIN [Concomitant]
     Route: 042
     Dates: start: 20080324, end: 20080324
  7. HEPARIN [Concomitant]
     Route: 042
     Dates: start: 20080324, end: 20080324
  8. HEPARIN [Concomitant]
     Route: 042
     Dates: start: 20080324, end: 20080325
  9. NITOROL [Concomitant]
     Route: 042
     Dates: start: 20080324, end: 20080325
  10. OMEPRAZOLE [Concomitant]
     Route: 048
     Dates: start: 20080328
  11. ARTIST [Concomitant]
     Route: 048
     Dates: start: 20080328
  12. NICORANDIL [Concomitant]
     Route: 048
     Dates: start: 20080328, end: 20080330
  13. ITAVASTATIN [Concomitant]
     Route: 048
     Dates: start: 20081218

REACTIONS (1)
  - ACUTE MYOCARDIAL INFARCTION [None]
